FAERS Safety Report 10974856 (Version 1)
Quarter: 2015Q2

REPORT INFORMATION
  Report Type: Spontaneous
  Country: US (occurrence: US)
  Receive Date: 20150401
  Receipt Date: 20150401
  Transmission Date: 20150821
  Serious: Yes (Other)
  Sender: FDA-Public Use
  Company Number: US-ELI_LILLY_AND_COMPANY-US201503008035

PATIENT
  Age: 64 Year
  Sex: Female
  Weight: 51.7 kg

DRUGS (2)
  1. TAXOTERE [Concomitant]
     Active Substance: DOCETAXEL
     Indication: PRODUCT USED FOR UNKNOWN INDICATION
     Dosage: UNK, UNKNOWN
     Route: 065
  2. CYRAMZA [Suspect]
     Active Substance: RAMUCIRUMAB
     Indication: NON-SMALL CELL LUNG CANCER
     Dosage: UNK UNK, UNKNOWN
     Route: 042

REACTIONS (9)
  - Lip swelling [Recovered/Resolved]
  - Pharyngeal oedema [Recovered/Resolved]
  - Aphagia [Recovered/Resolved]
  - Dyspnoea [Recovered/Resolved]
  - Swollen tongue [Recovered/Resolved]
  - Rash [Recovered/Resolved]
  - Gingival swelling [Recovered/Resolved]
  - Epistaxis [Recovered/Resolved]
  - Dysphonia [Recovered/Resolved]
